FAERS Safety Report 24806168 (Version 3)
Quarter: 2025Q4

REPORT INFORMATION
  Report Type: Spontaneous
  Country: US (occurrence: US)
  Receive Date: 20250103
  Receipt Date: 20251001
  Transmission Date: 20260117
  Serious: No
  Sender: ITALFARMACO SPA
  Company Number: US-ITALFARMACO SPA-2168338

PATIENT
  Age: 15 Year
  Sex: Male
  Weight: 91.05 kg

DRUGS (15)
  1. DUVYZAT [Suspect]
     Active Substance: GIVINOSTAT
     Indication: Duchenne muscular dystrophy
     Dates: start: 20241023
  2. ACETAMINOPHEN [Concomitant]
     Active Substance: ACETAMINOPHEN
  3. VITAMIN D3 [Concomitant]
     Active Substance: CHOLECALCIFEROL
  4. SPIRONOLACTONE [Concomitant]
     Active Substance: SPIRONOLACTONE
  5. POLYETHYLENE GLYCOL 3350 [Concomitant]
     Active Substance: POLYETHYLENE GLYCOL 3350
  6. NAPROXEN [Concomitant]
     Active Substance: NAPROXEN
  7. MELATONIN [Concomitant]
     Active Substance: MELATONIN
  8. LISINOPRIL [Concomitant]
     Active Substance: LISINOPRIL
  9. IBUPROFEN [Concomitant]
     Active Substance: IBUPROFEN
  10. GABAPENTIN [Concomitant]
     Active Substance: GABAPENTIN
  11. FLUTICASONE [Concomitant]
     Active Substance: FLUTICASONE
  12. FAMOTIDINE [Concomitant]
     Active Substance: FAMOTIDINE
  13. CANNABIDIOL [Concomitant]
     Active Substance: CANNABIDIOL
  14. ALBUTEROL [Concomitant]
     Active Substance: ALBUTEROL
  15. AGAMREE [Concomitant]
     Active Substance: VAMOROLONE

REACTIONS (3)
  - Platelet count decreased [Not Recovered/Not Resolved]
  - Liver function test increased [Not Recovered/Not Resolved]
  - Surgery [Not Recovered/Not Resolved]
